FAERS Safety Report 5504858-4 (Version None)
Quarter: 2007Q4

REPORT INFORMATION
  Report Type: 
  Country: None (occurrence: None)
  Receive Date: 20071031
  Receipt Date: 20071016
  Transmission Date: 20080405
  Serious: Yes (Death, Hospitalization)
  Sender: FDA-Public Use
  Company Number: 2007US002458

PATIENT
  Age: 60 Year
  Sex: Male

DRUGS (39)
  1. PROGRAF [Suspect]
     Indication: RENAL TRANSPLANT
     Dosage: 1 MG, TID; ORAL, 1.5 MG, UID/QD; ORAL, 1 MG, BID, ORAL; 3 MG,UID/QD; ORAL
     Route: 048
     Dates: end: 20060417
  2. PROGRAF [Suspect]
     Indication: RENAL TRANSPLANT
     Dosage: 1 MG, TID; ORAL, 1.5 MG, UID/QD; ORAL, 1 MG, BID, ORAL; 3 MG,UID/QD; ORAL
     Route: 048
     Dates: start: 20050405
  3. PROGRAF [Suspect]
     Indication: RENAL TRANSPLANT
     Dosage: 1 MG, TID; ORAL, 1.5 MG, UID/QD; ORAL, 1 MG, BID, ORAL; 3 MG,UID/QD; ORAL
     Route: 048
     Dates: start: 20060422
  4. MYCOPHENOLATE MOFETIL (MYCOPHENOLATE MOFETIL) TABLET [Suspect]
     Indication: RENAL TRANSPLANT
     Dosage: 1000 MG, BID; ORAL, 2500 MG, UID/QD ORAL, 1000 MG, UID/QD ORAL, 500 MG, BID, ORAL
     Route: 048
     Dates: end: 20060416
  5. MYCOPHENOLATE MOFETIL (MYCOPHENOLATE MOFETIL) TABLET [Suspect]
     Indication: RENAL TRANSPLANT
     Dosage: 1000 MG, BID; ORAL, 2500 MG, UID/QD ORAL, 1000 MG, UID/QD ORAL, 500 MG, BID, ORAL
     Route: 048
     Dates: start: 20050405, end: 20061229
  6. MYCOPHENOLATE MOFETIL (MYCOPHENOLATE MOFETIL) TABLET [Suspect]
     Indication: RENAL TRANSPLANT
     Dosage: 1000 MG, BID; ORAL, 2500 MG, UID/QD ORAL, 1000 MG, UID/QD ORAL, 500 MG, BID, ORAL
     Route: 048
     Dates: start: 20060420
  7. PREDNISONE [Suspect]
     Indication: RENAL TRANSPLANT
     Dosage: 5 MG, UID/QD; ORAL
     Route: 048
     Dates: start: 20050405, end: 20070101
  8. GANCICLOVIR [Concomitant]
  9. CLOTRIMAZOLE [Concomitant]
  10. MAGNESIUM OXIDE (MAGNESIUM OXIDE) [Concomitant]
  11. LOPRESSOR [Concomitant]
  12. MYCELEX [Concomitant]
  13. BACTRIM [Concomitant]
  14. PROTONIX [Concomitant]
  15. VALGANCICLOVIR HCL [Concomitant]
  16. ZOSYN [Concomitant]
  17. VANCOMYCIN HYDROCHLORIDE [Concomitant]
  18. NOVOLIN N [Concomitant]
  19. VYTORIN [Concomitant]
  20. FLOMAX (MORNIFLUMATE) [Concomitant]
  21. ASPIRIN [Concomitant]
  22. VICODIN [Concomitant]
  23. LEXAPRO [Concomitant]
  24. FUROSEMIDE [Concomitant]
  25. FOSAMAX [Concomitant]
  26. ISOSORBIDE MONONITRATE [Concomitant]
  27. ALLOPURINOL [Concomitant]
  28. COLCHICUM JTL LIQ [Concomitant]
  29. POTASSIUM CHLORIDE [Concomitant]
  30. MULTIVITAMIN [Concomitant]
  31. RAPAMUNE [Concomitant]
  32. INSULIN [Concomitant]
  33. HEPARIN [Concomitant]
  34. CEFAZOLIN [Concomitant]
  35. CIPROFLOXACIN [Concomitant]
  36. METRONIDAZOLE [Concomitant]
  37. OXYCODONE HCL [Concomitant]
  38. TAMSULOSIN HYDROCHLORIDE (TAMSULOSIN HYDROCHLORIDE) [Concomitant]
  39. INSULIN SUSPENSION, NPH (INSULIN INJECTION,ISOPHANE) [Concomitant]

REACTIONS (5)
  - ATRIAL FIBRILLATION [None]
  - CARDIAC ARREST [None]
  - ELECTROMECHANICAL DISSOCIATION [None]
  - OSTEOMYELITIS [None]
  - OSTEONECROSIS [None]
